FAERS Safety Report 7482170-4 (Version None)
Quarter: 2011Q2

REPORT INFORMATION
  Report Type: 
  Country: None (occurrence: None)
  Receive Date: 20110516
  Receipt Date: 20110504
  Transmission Date: 20111010
  Serious: Yes (Other)
  Sender: FDA-Public Use
  Company Number: GB-PFIZER INC-2011087702

PATIENT
  Sex: Male

DRUGS (1)
  1. BENEFIX [Suspect]
     Indication: FACTOR IX DEFICIENCY
     Dosage: ON DEMAND (DOSE, DATE FREQUENCY UNKNOWN)

REACTIONS (3)
  - ANAPHYLACTOID REACTION [None]
  - FACTOR IX INHIBITION [None]
  - HAEMARTHROSIS [None]
